FAERS Safety Report 23230934 (Version 1)
Quarter: 2023Q4

REPORT INFORMATION
  Report Type: Spontaneous
  Country: US (occurrence: None)
  Receive Date: 20231122
  Receipt Date: 20231122
  Transmission Date: 20240109
  Serious: Yes (Hospitalization)
  Sender: FDA-Public Use
  Company Number: None

PATIENT
  Age: 76 Year
  Sex: Male

DRUGS (5)
  1. AMBRISENTAN [Suspect]
     Active Substance: AMBRISENTAN
     Indication: Pulmonary hypertension
     Dosage: 5MG QD ORAL?
     Route: 048
     Dates: start: 20231024
  2. SILDENAFIL [Concomitant]
     Active Substance: SILDENAFIL
  3. FUROSEMIDE [Concomitant]
     Active Substance: FUROSEMIDE
  4. SPIRIVA RESPIMAT [Concomitant]
     Active Substance: TIOTROPIUM BROMIDE
  5. ASTELIN [Concomitant]
     Active Substance: AZELASTINE HYDROCHLORIDE

REACTIONS (4)
  - Anaemia [None]
  - Gastrointestinal haemorrhage [None]
  - Therapy interrupted [None]
  - Red blood cell transfusion [None]

NARRATIVE: CASE EVENT DATE: 20231113
